FAERS Safety Report 18892868 (Version 1)
Quarter: 2021Q1

REPORT INFORMATION
  Report Type: Report from Study
  Country: AU (occurrence: AU)
  Receive Date: 20210215
  Receipt Date: 20210215
  Transmission Date: 20210420
  Serious: Yes (Hospitalization, Other)
  Sender: FDA-Public Use
  Company Number: AU-REGENERON PHARMACEUTICALS, INC.-2020-72262

PATIENT

DRUGS (2)
  1. EYLEA [Suspect]
     Active Substance: AFLIBERCEPT
     Dosage: UNK, Q1MON; BOTH EYES
     Route: 031
  2. EYLEA [Suspect]
     Active Substance: AFLIBERCEPT
     Indication: NEOVASCULAR AGE-RELATED MACULAR DEGENERATION
     Dosage: UNKNOWN DOSE, EVERY 5?6 WEEKS, UNKNOWN SITE AND TOTAL NUMBER OF INJECTIONS
     Route: 031
     Dates: start: 20191114

REACTIONS (4)
  - Visual impairment [Unknown]
  - Skin cancer [Unknown]
  - Dry age-related macular degeneration [Unknown]
  - Visual acuity reduced [Unknown]
